FAERS Safety Report 23527945 (Version 1)
Quarter: 2024Q1

REPORT INFORMATION
  Report Type: Spontaneous
  Country: FR (occurrence: FR)
  Receive Date: 20240215
  Receipt Date: 20240215
  Transmission Date: 20240410
  Serious: Yes (Life-Threatening)
  Sender: FDA-Public Use
  Company Number: None

PATIENT
  Age: 66 Year
  Sex: Male
  Weight: 80 kg

DRUGS (7)
  1. SUFENTANIL [Suspect]
     Active Substance: SUFENTANIL
     Indication: General anaesthesia
     Dosage: 15 MICROGRAM
     Route: 042
     Dates: start: 20240130, end: 20240130
  2. DEXAMETHASONE [Suspect]
     Active Substance: DEXAMETHASONE
     Indication: Prophylaxis of nausea and vomiting
     Dosage: 8 MILLIGRAM
     Route: 042
     Dates: start: 20240130, end: 20240130
  3. KETAMINE [Suspect]
     Active Substance: KETAMINE
     Indication: General anaesthesia
     Dosage: 20 MILLIGRAM
     Route: 042
     Dates: start: 20240130, end: 20240130
  4. PROPOFOL LIPURO [Suspect]
     Active Substance: PROPOFOL
     Indication: General anaesthesia
     Dosage: 300 MILLIGRAM
     Route: 042
     Dates: start: 20240130, end: 20240130
  5. XYLOCAINE [Suspect]
     Active Substance: LIDOCAINE HYDROCHLORIDE
     Indication: General anaesthesia
     Dosage: 50 MILLIGRAM
     Route: 042
     Dates: start: 20240130, end: 20240130
  6. LIDOCAINE HYDROCHLORIDE\NAPHAZOLINE NITRATE [Suspect]
     Active Substance: LIDOCAINE HYDROCHLORIDE\NAPHAZOLINE NITRATE
     Indication: General anaesthesia
     Dosage: 3 MILLILITER (SOLUTION FOR MUCOSAL APPLICATION)
     Route: 045
     Dates: start: 20240130, end: 20240130
  7. CISATRACURIUM [Suspect]
     Active Substance: CISATRACURIUM
     Indication: General anaesthesia
     Dosage: 12 MILLIGRAM
     Route: 042
     Dates: start: 20240130, end: 20240130

REACTIONS (1)
  - Anaphylactic shock [Recovered/Resolved]

NARRATIVE: CASE EVENT DATE: 20240130
